FAERS Safety Report 25025175 (Version 2)
Quarter: 2025Q2

REPORT INFORMATION
  Report Type: Spontaneous
  Country: GB (occurrence: GB)
  Receive Date: 20250228
  Receipt Date: 20250625
  Transmission Date: 20250716
  Serious: Yes (Life-Threatening, Other)
  Sender: MYLAN
  Company Number: None

PATIENT
  Age: 61 Year
  Sex: Female

DRUGS (6)
  1. SERTRALINE [Suspect]
     Active Substance: SERTRALINE HYDROCHLORIDE
     Indication: Product used for unknown indication
     Dosage: 100 MILLIGRAM, QD (SERTRALINE 100 MG TABLETS ONE TO BE TAKEN EACH DAY - STOPPED TAKING FEW WEEKSAGO (SELF WEAN TO 50MG OD))
  2. SERTRALINE [Suspect]
     Active Substance: SERTRALINE HYDROCHLORIDE
     Dosage: 50 MILLIGRAM, QD (SELF WEAN TO 50MG OD)
  3. AMITRIPTYLINE [Suspect]
     Active Substance: AMITRIPTYLINE
     Indication: Product used for unknown indication
     Dosage: 10 MILLIGRAM, BID (TWO TO BE TAKEN AT NIGHT)
  4. LANSOPRAZOLE [Concomitant]
     Active Substance: LANSOPRAZOLE
  5. RISEDRONATE SODIUM [Concomitant]
     Active Substance: RISEDRONATE SODIUM
     Dosage: 35 MILLIGRAM, QD (35 MG TABLETS ONE TO BE TAKEN ON THE SAME DAY EACH WEEK- WEDNESDAYS, SOMETIMES DOESN^T TAKE DUE TO HEARTBURN)
  6. POTASSIUM BICARBONATE\SODIUM ALGINATE [Concomitant]
     Active Substance: POTASSIUM BICARBONATE\SODIUM ALGINATE

REACTIONS (2)
  - Ventricular fibrillation [Unknown]
  - Electrocardiogram QT prolonged [Unknown]
